FAERS Safety Report 6302275-0 (Version None)
Quarter: 2009Q3

REPORT INFORMATION
  Report Type: 
  Country: None (occurrence: None)
  Receive Date: 20090810
  Receipt Date: 20090727
  Transmission Date: 20100115
  Serious: Yes (Other)
  Sender: FDA-Public Use
  Company Number: BR-PFIZER INC-2009232799

PATIENT

DRUGS (1)
  1. CHAMPIX [Suspect]
     Indication: SMOKING CESSATION THERAPY
     Dosage: UNK
     Route: 048
     Dates: start: 20090401, end: 20090601

REACTIONS (8)
  - ABNORMAL DREAMS [None]
  - ASTHMA [None]
  - DEPRESSION [None]
  - NAUSEA [None]
  - RESPIRATORY FAILURE [None]
  - SUICIDAL IDEATION [None]
  - TOBACCO USER [None]
  - VOMITING [None]
